FAERS Safety Report 4314841-2 (Version None)
Quarter: 2004Q1

REPORT INFORMATION
  Report Type: 
  Country: None (occurrence: None)
  Receive Date: 20040308
  Receipt Date: 20040227
  Transmission Date: 20041129
  Serious: Yes (Hospitalization, Other)
  Sender: FDA-Public Use
  Company Number: FRWYE316526SEP03

PATIENT
  Age: 38 Year
  Sex: Female

DRUGS (3)
  1. RAPAMUNE [Suspect]
     Indication: PROPHYLAXIS AGAINST TRANSPLANT REJECTION
     Dosage: 12 MG DAILY AT THE TIME OF EVENT ONSET ORAL
     Route: 048
     Dates: start: 20030731
  2. CELLCEPT [Concomitant]
  3. PREDNISONE [Concomitant]

REACTIONS (4)
  - BLOOD LACTATE DEHYDROGENASE INCREASED [None]
  - HAEMOGLOBIN DECREASED [None]
  - PROTEINURIA [None]
  - THROMBOTIC MICROANGIOPATHY [None]
